FAERS Safety Report 18222443 (Version 2)
Quarter: 2020Q3

REPORT INFORMATION
  Report Type: Spontaneous
  Country: US (occurrence: US)
  Receive Date: 20200902
  Receipt Date: 20200909
  Transmission Date: 20201103
  Serious: Yes (Other)
  Sender: FDA-Public Use
  Company Number: US-SUNOVION-2020SUN002540

PATIENT
  Age: 72 Year
  Sex: Female

DRUGS (1)
  1. LONHALA MAGNAIR [Suspect]
     Active Substance: GLYCOPYRROLATE
     Dosage: 25 ?G
     Route: 055

REACTIONS (6)
  - Product dose omission issue [Unknown]
  - Productive cough [Unknown]
  - Device delivery system issue [Unknown]
  - Device issue [Unknown]
  - Asthma [Unknown]
  - Mycobacterium avium complex infection [Unknown]
